FAERS Safety Report 11231395 (Version 1)
Quarter: 2015Q2

REPORT INFORMATION
  Report Type: Spontaneous
  Country: US (occurrence: None)
  Receive Date: 20150630
  Receipt Date: 20150630
  Transmission Date: 20150821
  Serious: No
  Sender: FDA-Public Use
  Company Number: None

PATIENT
  Age: 10 Year
  Sex: Female

DRUGS (1)
  1. AVEENO PROTECT PLUS HYDRATE SUNSCREEN BROAD SPECTRUM SPF50 FOR FACE [Suspect]
     Active Substance: AVOBENZONE\HOMOSALATE\OCTISALATE\OCTOCRYLENE\OXYBENZONE

REACTIONS (2)
  - Chemical burn of skin [None]
  - Chemical burns of eye [None]

NARRATIVE: CASE EVENT DATE: 20150612
